FAERS Safety Report 5705495-9 (Version None)
Quarter: 2008Q2

REPORT INFORMATION
  Report Type: 
  Country: None (occurrence: None)
  Receive Date: 20080411
  Receipt Date: 20080331
  Transmission Date: 20081010
  Serious: Yes (Life-Threatening, Hospitalization)
  Sender: FDA-Public Use
  Company Number: SPV1-2008-00747

PATIENT
  Age: 43 Year
  Sex: Male
  Weight: 45.4 kg

DRUGS (9)
  1. IDURSULFASE (IDURSULFASE) CONCENTRATE FOR SOLUTION FOR INFUSION [Suspect]
     Indication: MUCOPOLYSACCHARIDOSIS II
     Dosage: 0.5 MG/KG, 1X/WEEK, IV DRIP
     Route: 041
     Dates: start: 20070614
  2. VERAPMIL (VERAPMIL) [Concomitant]
  3. FAMOTIDINE [Concomitant]
  4. ASPIRIN [Concomitant]
  5. DIGOXIN [Concomitant]
  6. TORSEMIDE [Concomitant]
  7. PIMOBENDAN (PIMOBENDAN) [Concomitant]
  8. LEVOTHYROXINE SODIUM [Concomitant]
  9. HYDROCORTISONE [Concomitant]

REACTIONS (5)
  - CARDIAC FAILURE CONGESTIVE [None]
  - CARDIO-RESPIRATORY ARREST [None]
  - INCORRECT DOSE ADMINISTERED [None]
  - SOMNOLENCE [None]
  - SUICIDE ATTEMPT [None]
